FAERS Safety Report 6471282-X (Version None)
Quarter: 2009Q4

REPORT INFORMATION
  Report Type: 
  Country: None (occurrence: None)
  Receive Date: 20091203
  Receipt Date: 20080317
  Transmission Date: 20100525
  Serious: Yes (Other)
  Sender: FDA-Public Use
  Company Number: US-ELI_LILLY_AND_COMPANY-US200802004590

PATIENT
  Sex: Male
  Weight: 117.91 kg

DRUGS (7)
  1. BYETTA [Suspect]
     Dosage: 5 UG, 2/D
     Route: 058
     Dates: start: 20071030, end: 20071128
  2. BYETTA [Suspect]
     Dosage: 10 UG, 2/D
     Route: 058
     Dates: start: 20071129, end: 20071227
  3. LIPITOR [Concomitant]
     Indication: HYPERLIPIDAEMIA
     Dosage: 20 MG, UNK
     Route: 048
  4. METFORMIN HCL [Concomitant]
     Indication: TYPE 2 DIABETES MELLITUS
     Dosage: 1000 MG, 2/D
  5. PLENDIL [Concomitant]
     Indication: HYPERTENSION
     Dosage: 5 MG, DAILY (1/D)
  6. BABY ASPIRIN [Concomitant]
     Indication: TYPE 2 DIABETES MELLITUS
     Dosage: 81 MG, DAILY (1/D)
  7. BENICAR HCT [Concomitant]
     Indication: HYPERTENSION
     Dosage: UNK MG, UNK
     Route: 048

REACTIONS (2)
  - PANCREATITIS [None]
  - WEIGHT DECREASED [None]
